FAERS Safety Report 4337828-2 (Version None)
Quarter: 2004Q1

REPORT INFORMATION
  Report Type: 
  Country: None (occurrence: None)
  Receive Date: 20040326
  Receipt Date: 20030916
  Transmission Date: 20041129
  Serious: Yes (Life-Threatening)
  Sender: FDA-Public Use
  Company Number: 2003AP03252

PATIENT
  Age: 67 Year
  Sex: Male

DRUGS (2)
  1. LISINOPRIL [Suspect]
  2. METOPROLOL [Suspect]

REACTIONS (3)
  - BRADYCARDIA [None]
  - DIARRHOEA [None]
  - HYPERKALAEMIA [None]
